FAERS Safety Report 10210250 (Version 1)
Quarter: 2014Q2

REPORT INFORMATION
  Report Type: Spontaneous
  Country: US (occurrence: US)
  Receive Date: 20140602
  Receipt Date: 20140602
  Transmission Date: 20141212
  Serious: No
  Sender: FDA-Public Use
  Company Number: US-PFIZER INC-2014147827

PATIENT
  Age: 27 Year
  Sex: Female

DRUGS (3)
  1. ZOLOFT [Suspect]
     Indication: ANXIETY
     Dosage: UNK
     Dates: start: 200309
  2. PRENATAL VITAMINS [Concomitant]
     Dosage: UNK
  3. CLARITIN [Concomitant]
     Dosage: UNK

REACTIONS (1)
  - Hypertension [Unknown]
